FAERS Safety Report 18175738 (Version 81)
Quarter: 2025Q3

REPORT INFORMATION
  Report Type: Report from Study
  Country: US (occurrence: US)
  Receive Date: 20200820
  Receipt Date: 20250917
  Transmission Date: 20251021
  Serious: Yes (Hospitalization, Congenital Anomaly, Other)
  Sender: TAKEDA
  Company Number: US-SHIRE-US202026750

PATIENT
  Sex: Female
  Weight: 59 kg

DRUGS (107)
  1. HUMAN IMMUNOGLOBULIN G [Suspect]
     Active Substance: HUMAN IMMUNOGLOBULIN G
     Indication: Dermatomyositis
     Dosage: 40 GRAM, Q3WEEKS
  2. HUMAN IMMUNOGLOBULIN G [Suspect]
     Active Substance: HUMAN IMMUNOGLOBULIN G
     Indication: Myopathy
     Dosage: 20 GRAM, 1/WEEK
  3. HUMAN IMMUNOGLOBULIN G [Suspect]
     Active Substance: HUMAN IMMUNOGLOBULIN G
     Dosage: 20 GRAM, 1/WEEK
  4. DIPHENHYDRAMINE [Concomitant]
     Active Substance: DIPHENHYDRAMINE
  5. ACETAMINOPHEN [Concomitant]
     Active Substance: ACETAMINOPHEN
  6. LYRICA [Concomitant]
     Active Substance: PREGABALIN
  7. ONDANSETRON HYDROCHLORIDE [Concomitant]
     Active Substance: ONDANSETRON HYDROCHLORIDE
  8. NITROSTAT [Concomitant]
     Active Substance: NITROGLYCERIN
  9. RESTORIL [Concomitant]
     Active Substance: TEMAZEPAM
  10. SULFAMETHOXAZOLE AND TRIMETHOPRIM [Concomitant]
     Active Substance: SULFAMETHOXAZOLE\TRIMETHOPRIM
  11. LEVOTHYROXINE SODIUM [Concomitant]
     Active Substance: LEVOTHYROXINE SODIUM
  12. PRAMIPEXOLE DIHYDROCHLORIDE [Concomitant]
     Active Substance: PRAMIPEXOLE DIHYDROCHLORIDE
  13. SODIUM CHLORIDE [Concomitant]
     Active Substance: SODIUM CHLORIDE
  14. RAMIPRIL [Concomitant]
     Active Substance: RAMIPRIL
  15. EPINEPHRINE [Concomitant]
     Active Substance: EPINEPHRINE
  16. FLUTICASONE PROPIONATE [Concomitant]
     Active Substance: FLUTICASONE PROPIONATE
  17. OXYCODONE AND ACETAMINOPHEN [Concomitant]
     Active Substance: ACETAMINOPHEN\OXYCODONE HYDROCHLORIDE
  18. ASTAXANTHIN [Concomitant]
     Active Substance: ASTAXANTHIN
  19. GLUTATHIONE [Concomitant]
     Active Substance: GLUTATHIONE
  20. PROLIA [Concomitant]
     Active Substance: DENOSUMAB
  21. LIDOCAINE\PRILOCAINE [Concomitant]
     Active Substance: LIDOCAINE\PRILOCAINE
  22. REGLAN [Concomitant]
     Active Substance: METOCLOPRAMIDE HYDROCHLORIDE
  23. GENTAMICIN SULFATE [Concomitant]
     Active Substance: GENTAMICIN SULFATE
  24. DOCUSATE SODIUM [Concomitant]
     Active Substance: DOCUSATE SODIUM
  25. NARCAN [Concomitant]
     Active Substance: NALOXONE HYDROCHLORIDE
  26. BUMETANIDE [Concomitant]
     Active Substance: BUMETANIDE
  27. MIDODRINE HYDROCHLORIDE [Concomitant]
     Active Substance: MIDODRINE HYDROCHLORIDE
  28. CYCLOBENZAPRINE HYDROCHLORIDE [Concomitant]
     Active Substance: CYCLOBENZAPRINE HYDROCHLORIDE
  29. AMIODARONE HYDROCHLORIDE [Concomitant]
     Active Substance: AMIODARONE HYDROCHLORIDE
  30. ABILIFY [Concomitant]
     Active Substance: ARIPIPRAZOLE
  31. METRONIDAZOLE [Concomitant]
     Active Substance: METRONIDAZOLE
  32. ACETYLCYSTEINE [Concomitant]
     Active Substance: ACETYLCYSTEINE
  33. ATORVASTATIN CALCIUM [Concomitant]
     Active Substance: ATORVASTATIN CALCIUM
  34. MUPIROCIN [Concomitant]
     Active Substance: MUPIROCIN
  35. XANAX [Concomitant]
     Active Substance: ALPRAZOLAM
  36. IMODIUM A-D [Concomitant]
     Active Substance: LOPERAMIDE HYDROCHLORIDE
  37. CYMBALTA [Concomitant]
     Active Substance: DULOXETINE HYDROCHLORIDE
  38. CoQmax ubiquinol [Concomitant]
  39. CLONIDINE HYDROCHLORIDE [Concomitant]
     Active Substance: CLONIDINE HYDROCHLORIDE
  40. NAPROXEN [Concomitant]
     Active Substance: NAPROXEN
  41. PROAIR HFA [Concomitant]
     Active Substance: ALBUTEROL SULFATE
  42. LEVOCARNITINE [Concomitant]
     Active Substance: LEVOCARNITINE
  43. BACTRIM [Concomitant]
     Active Substance: SULFAMETHOXAZOLE\TRIMETHOPRIM
  44. ALBUTEROL SULFATE [Concomitant]
     Active Substance: ALBUTEROL SULFATE
  45. Calcium plus magnesium [Concomitant]
  46. DIGOXIN [Concomitant]
     Active Substance: DIGOXIN
  47. ALPHA LIPOIC ACID [Concomitant]
     Active Substance: .ALPHA.-LIPOIC ACID
  48. SPIRONOLACTONE [Concomitant]
     Active Substance: SPIRONOLACTONE
  49. ACETYLCARNITINE [Concomitant]
     Active Substance: ACETYLCARNITINE
  50. FERROUS SULFATE [Concomitant]
     Active Substance: FERROUS SULFATE
  51. BIOTIN [Concomitant]
     Active Substance: BIOTIN
  52. GLUCOSAMINE [Concomitant]
     Active Substance: GLUCOSAMINE
  53. VITAMIN D3 [Concomitant]
     Active Substance: CHOLECALCIFEROL
  54. LORATADINE [Concomitant]
     Active Substance: LORATADINE
  55. CEPHALEXIN [Concomitant]
     Active Substance: CEPHALEXIN
  56. COENZYME Q10 [Concomitant]
     Active Substance: DIETARY SUPPLEMENT\UBIDECARENONE
  57. AZATHIOPRINE [Concomitant]
     Active Substance: AZATHIOPRINE
  58. PROTOPIC [Concomitant]
     Active Substance: TACROLIMUS
  59. ALENDRONATE [Concomitant]
     Active Substance: ALENDRONATE SODIUM
  60. COREG [Concomitant]
     Active Substance: CARVEDILOL
  61. DULOXETINE [Concomitant]
     Active Substance: DULOXETINE
  62. OMEPRAZOLE [Concomitant]
     Active Substance: OMEPRAZOLE
  63. HYDROCORTISONE [Concomitant]
     Active Substance: HYDROCORTISONE
  64. ASIAN GINSENG [Concomitant]
     Active Substance: ASIAN GINSENG
  65. ALPRAZOLAM [Concomitant]
     Active Substance: ALPRAZOLAM
  66. TORSEMIDE [Concomitant]
     Active Substance: TORSEMIDE
  67. FUROSEMIDE [Concomitant]
     Active Substance: FUROSEMIDE
  68. PREGABALIN [Concomitant]
     Active Substance: PREGABALIN
  69. KLOR-CON M10 [Concomitant]
     Active Substance: POTASSIUM CHLORIDE
  70. LEVOTHYROXINE [Concomitant]
     Active Substance: LEVOTHYROXINE
  71. DOCUSATE [Concomitant]
     Active Substance: DOCUSATE
  72. CRUCIFEROUS COMPLETE [Concomitant]
  73. OXYGEN [Concomitant]
     Active Substance: OXYGEN
  74. ALENDRONATE SODIUM [Concomitant]
     Active Substance: ALENDRONATE SODIUM
  75. Ala [Concomitant]
  76. GLUCOSAMINE SULFATE [Concomitant]
     Active Substance: GLUCOSAMINE SULFATE
  77. FARXIGA [Concomitant]
     Active Substance: DAPAGLIFLOZIN PROPANEDIOL
  78. BUMETANIDE [Concomitant]
     Active Substance: BUMETANIDE
  79. ALPHA LIPOIC ACID [Concomitant]
     Active Substance: .ALPHA.-LIPOIC ACID
  80. DIMETHYL SULFONE [Concomitant]
     Active Substance: DIMETHYL SULFONE
  81. ALBUTEROL\IPRATROPIUM [Concomitant]
     Active Substance: ALBUTEROL\IPRATROPIUM
  82. MENAQUINONE 6 [Concomitant]
     Active Substance: MENAQUINONE 6
  83. VALACYCLOVIR [Concomitant]
     Active Substance: VALACYCLOVIR HYDROCHLORIDE
  84. GINKGO [Concomitant]
     Active Substance: GINKGO
  85. PERCOCET [Concomitant]
     Active Substance: ACETAMINOPHEN\OXYCODONE HYDROCHLORIDE
  86. HERBALS\TURMERIC [Concomitant]
     Active Substance: HERBALS\TURMERIC
  87. ZOFRAN [Concomitant]
     Active Substance: ONDANSETRON HYDROCHLORIDE
  88. AMIODARONE [Concomitant]
     Active Substance: AMIODARONE
  89. CYCLOBENZAPRINE [Concomitant]
     Active Substance: CYCLOBENZAPRINE
  90. ALBUTEROL [Concomitant]
     Active Substance: ALBUTEROL
  91. PRAMIPEXOLE [Concomitant]
     Active Substance: PRAMIPEXOLE
  92. DIPHENHYDRAMINE HYDROCHLORIDE [Concomitant]
     Active Substance: DIPHENHYDRAMINE HYDROCHLORIDE
  93. DOXYCYCLINE HYCLATE [Concomitant]
     Active Substance: DOXYCYCLINE HYCLATE
  94. IMURAN [Concomitant]
     Active Substance: AZATHIOPRINE
  95. VALACYCLOVIR HYDROCHLORIDE [Concomitant]
     Active Substance: VALACYCLOVIR HYDROCHLORIDE
  96. VITAMIN B [Concomitant]
     Active Substance: VITAMIN B
  97. JARDIANCE [Concomitant]
     Active Substance: EMPAGLIFLOZIN
  98. DOXYCYCLINE [Concomitant]
     Active Substance: DOXYCYCLINE
  99. ASPIRIN [Concomitant]
     Active Substance: ASPIRIN
  100. ELIQUIS [Concomitant]
     Active Substance: APIXABAN
  101. DULCOLAX STOOL SOFTENER [Concomitant]
     Active Substance: DOCUSATE SODIUM
  102. ONDANSETRON [Concomitant]
     Active Substance: ONDANSETRON
  103. FOLIC ACID [Concomitant]
     Active Substance: FOLIC ACID
  104. IRON [Concomitant]
     Active Substance: IRON
  105. POTASSIUM CHLORIDE [Concomitant]
     Active Substance: POTASSIUM CHLORIDE
  106. PHENAZOPYRIDINE HCL [Concomitant]
     Active Substance: PHENAZOPYRIDINE HYDROCHLORIDE
  107. WEGOVY [Concomitant]
     Active Substance: SEMAGLUTIDE

REACTIONS (81)
  - Cervical vertebral fracture [Unknown]
  - Infection [Unknown]
  - Systemic lupus erythematosus [Unknown]
  - Pancreatic mass [Unknown]
  - Renal impairment [Unknown]
  - Hypervolaemia [Unknown]
  - Dehydration [Unknown]
  - Spinal stenosis [Unknown]
  - Pneumonia [Unknown]
  - Sepsis [Unknown]
  - Impaired gastric emptying [Unknown]
  - Urinary tract infection [Not Recovered/Not Resolved]
  - Cardiac failure congestive [Unknown]
  - Cardiac failure [Recovering/Resolving]
  - Loss of consciousness [Unknown]
  - Seizure [Unknown]
  - Pain in extremity [Unknown]
  - Dyspnoea [Unknown]
  - Hypotension [Unknown]
  - Ejection fraction abnormal [Unknown]
  - Blood pressure abnormal [Unknown]
  - Catheter site erythema [Unknown]
  - Catheter site swelling [Unknown]
  - Poor venous access [Unknown]
  - Disorientation [Unknown]
  - Poor quality sleep [Unknown]
  - Sacral pain [Unknown]
  - Memory impairment [Unknown]
  - Hypersomnia [Unknown]
  - Heart rate irregular [Unknown]
  - Cardiac disorder [Unknown]
  - Discharge [Unknown]
  - Illness [Unknown]
  - Skin infection [Unknown]
  - Skin abrasion [Unknown]
  - Aphasia [Unknown]
  - Muscle strain [Unknown]
  - Wound infection [Unknown]
  - Tenderness [Unknown]
  - Fall [Unknown]
  - Incoherent [Unknown]
  - Eosinophil count increased [Unknown]
  - Insurance issue [Unknown]
  - Peripheral swelling [Unknown]
  - Dry skin [Unknown]
  - Limb injury [Unknown]
  - Nasopharyngitis [Unknown]
  - Incorrect dose administered [Unknown]
  - Weight increased [Unknown]
  - Fluid retention [Unknown]
  - Product dose omission issue [Unknown]
  - Product use issue [Unknown]
  - Bladder disorder [Unknown]
  - Ejection fraction decreased [Unknown]
  - Skin laceration [Unknown]
  - Sinusitis [Unknown]
  - Feeling abnormal [Recovering/Resolving]
  - Influenza [Unknown]
  - Somnolence [Unknown]
  - Swelling [Unknown]
  - Abdominal distension [Unknown]
  - Asthenia [Recovering/Resolving]
  - Decreased appetite [Unknown]
  - Lymphadenopathy [Unknown]
  - Pain [Unknown]
  - Abdominal pain lower [Unknown]
  - Blood pressure increased [Unknown]
  - Cough [Unknown]
  - Erythema [Unknown]
  - Malaise [Unknown]
  - Hypertension [Unknown]
  - Hyperhidrosis [Unknown]
  - Back pain [Unknown]
  - Diarrhoea [Recovering/Resolving]
  - Arthralgia [Unknown]
  - Pruritus [Unknown]
  - Dizziness [Unknown]
  - Fatigue [Unknown]
  - Nausea [Unknown]
  - Headache [Unknown]
  - Oedema [Unknown]
